FAERS Safety Report 5596883-2 (Version None)
Quarter: 2008Q1

REPORT INFORMATION
  Report Type: 
  Country: None (occurrence: None)
  Receive Date: 20080119
  Receipt Date: 20080110
  Transmission Date: 20080703
  Serious: Yes (Death)
  Sender: FDA-Public Use
  Company Number: US-PFIZER INC-2008004624

PATIENT
  Sex: Female

DRUGS (2)
  1. DETROL LA [Suspect]
  2. ZOLOFT [Suspect]

REACTIONS (1)
  - DEATH [None]
